FAERS Safety Report 8141423-7 (Version None)
Quarter: 2012Q1

REPORT INFORMATION
  Report Type: 
  Country: None (occurrence: None)
  Receive Date: 20120216
  Receipt Date: 20120206
  Transmission Date: 20120608
  Serious: Yes (Death, Other)
  Sender: FDA-Public Use
  Company Number: ES-ROCHE-1037464

PATIENT

DRUGS (4)
  1. FLUDARABINE PHOSPHATE [Suspect]
     Indication: HAEMATOLOGICAL MALIGNANCY
     Route: 065
  2. MELPHALAN HYDROCHLORIDE [Suspect]
     Indication: MALIGNANT LYMPHOID NEOPLASM
     Dosage: 70-140 MG/M2
     Route: 042
  3. MYCOPHENOLATE MOFETIL (CELLCEPT) [Suspect]
     Indication: PROPHYLAXIS AGAINST GRAFT VERSUS HOST DISEASE
     Route: 065
  4. BUSULFAN [Suspect]
     Indication: NEOPLASM MALIGNANT
     Dosage: 8-10 MG/KG
     Route: 048

REACTIONS (11)
  - ENTEROBACTER INFECTION [None]
  - PSEUDOMONAL SEPSIS [None]
  - SEPTIC SHOCK [None]
  - BACILLUS INFECTION [None]
  - NEUTROPENIA [None]
  - FEBRILE NEUTROPENIA [None]
  - ESCHERICHIA BACTERAEMIA [None]
  - MUCOSAL INFLAMMATION [None]
  - ENTEROCOCCAL INFECTION [None]
  - BACTERIAL INFECTION [None]
  - STREPTOCOCCAL INFECTION [None]
